FAERS Safety Report 6042207-6 (Version None)
Quarter: 2009Q1

REPORT INFORMATION
  Report Type: 
  Country: None (occurrence: None)
  Receive Date: 20090116
  Receipt Date: 20080701
  Transmission Date: 20090719
  Serious: No
  Sender: FDA-Public Use
  Company Number: US-BAYER-200811876BCC

PATIENT
  Age: 84 Year
  Sex: Female
  Weight: 64 kg

DRUGS (6)
  1. ALEVE [Suspect]
     Indication: POLYMYOSITIS
     Dosage: TOTAL DAILY DOSE: 880 MG  UNIT DOSE: 220 MG
     Dates: start: 20080420
  2. DIAZIDE [Concomitant]
  3. MAGNESIUM SULFATE [Concomitant]
  4. CALCIUM [Concomitant]
  5. ZINC [Concomitant]
  6. MULTI-VITAMIN [Concomitant]

REACTIONS (2)
  - ABDOMINAL DISTENSION [None]
  - NAUSEA [None]
